FAERS Safety Report 8153691-6 (Version None)
Quarter: 2012Q1

REPORT INFORMATION
  Report Type: 
  Country: None (occurrence: None)
  Receive Date: 20120221
  Receipt Date: 20120213
  Transmission Date: 20120608
  Serious: Yes (Hospitalization)
  Sender: FDA-Public Use
  Company Number: AU-B.I. PHARMACEUTICALS,INC./RIDGEFIELD-2012-AU-00150AU

PATIENT
  Sex: Male

DRUGS (2)
  1. PRADAXA [Suspect]
  2. DIURETIC [Suspect]
     Indication: CARDIAC FAILURE

REACTIONS (2)
  - CARDIAC FAILURE ACUTE [None]
  - RENAL IMPAIRMENT [None]
